FAERS Safety Report 7375769-7 (Version None)
Quarter: 2011Q1

REPORT INFORMATION
  Report Type: 
  Country: None (occurrence: None)
  Receive Date: 20110315
  Receipt Date: 20110224
  Transmission Date: 20110831
  Serious: Yes (Hospitalization, Other)
  Sender: FDA-Public Use
  Company Number: 2011P1004630

PATIENT
  Age: 77 Year
  Sex: Male
  Weight: 67.586 kg

DRUGS (14)
  1. FISH OIL [Concomitant]
  2. ISOSORBIDE DINITRATE [Concomitant]
  3. DINITRATE [Concomitant]
  4. WARFARIN SODIUM [Suspect]
     Indication: ANTICOAGULANT THERAPY
     Dosage: 5 MG;QD - 4 TIMES PER WEEK;PO; 2.5 MG;QD - 3 TIMES PER WEEK;PO
     Route: 048
     Dates: start: 20110101, end: 20110222
  5. WARFARIN SODIUM [Suspect]
     Indication: ANTICOAGULANT THERAPY
     Dosage: 5 MG;QD - 4 TIMES PER WEEK;PO; 2.5 MG;QD - 3 TIMES PER WEEK;PO
     Route: 048
     Dates: start: 20110101, end: 20110222
  6. SIMVASTATIN [Concomitant]
  7. ASPIRIN [Concomitant]
  8. VITAMIN B COMPLEX WITH FOLIC ACID [Concomitant]
  9. ASCORBIC ACID [Concomitant]
  10. CLONAZEPAM [Concomitant]
  11. OMEPRAZOLE [Concomitant]
  12. RAMIPRIL [Concomitant]
  13. WELLBUTURIN (BUPROPION XL [Concomitant]
  14. CARFVEDILOL [Concomitant]

REACTIONS (1)
  - PROTHROMBIN TIME PROLONGED [None]
